FAERS Safety Report 8989106 (Version 1)
Quarter: 2012Q4

REPORT INFORMATION
  Report Type: 
  Country: JP (occurrence: JP)
  Receive Date: 20121228
  Receipt Date: 20121228
  Transmission Date: 20130627
  Serious: Yes (Other)
  Sender: FDA-Public Use
  Company Number: JP-ASTELLAS-2012JP012032

PATIENT
  Age: 49 Year
  Sex: Male

DRUGS (4)
  1. PROGRAF [Suspect]
     Indication: RHEUMATOID VASCULITIS
     Route: 065
  2. PREDNISOLONE [Concomitant]
     Indication: RHEUMATOID ARTHRITIS
     Dosage: UNK
     Route: 065
     Dates: start: 2002
  3. PREDNISOLONE [Concomitant]
     Indication: RHEUMATOID VASCULITIS
     Dosage: 40 mg, Unknown/D
     Route: 065
     Dates: start: 201104
  4. CYCLOSPORIN [Concomitant]
     Indication: RHEUMATOID VASCULITIS
     Dosage: UNK
     Route: 065
     Dates: start: 200803

REACTIONS (2)
  - Drug ineffective [Unknown]
  - Rheumatoid vasculitis [Recovering/Resolving]
